FAERS Safety Report 10036322 (Version 1)
Quarter: 2014Q1

REPORT INFORMATION
  Report Type: Spontaneous
  Country: BR (occurrence: BR)
  Receive Date: 20140325
  Receipt Date: 20140325
  Transmission Date: 20141002
  Serious: Yes (Other)
  Sender: FDA-Public Use
  Company Number: BR-IPSEN BIOPHARMACEUTICALS, INC.-2014-1297

PATIENT
  Sex: 0

DRUGS (3)
  1. SOMATULINE AUTOGEL [Suspect]
     Indication: ALBRIGHT^S DISEASE
     Dosage: NOT REPORTED
     Route: 058
     Dates: start: 20131222
  2. SOMATULINE AUTOGEL [Suspect]
     Indication: ACROMEGALY
  3. SOMATULINE AUTOGEL [Suspect]
     Indication: OFF LABEL USE

REACTIONS (1)
  - Polyneuropathy [Unknown]
